FAERS Safety Report 8578614-7 (Version None)
Quarter: 2012Q3

REPORT INFORMATION
  Report Type: 
  Country: None (occurrence: None)
  Receive Date: 20120808
  Receipt Date: 20120726
  Transmission Date: 20120928
  Serious: Yes (Death)
  Sender: FDA-Public Use
  Company Number: PT-ASTELLAS-2012US006694

PATIENT
  Age: 41 Day
  Sex: Male

DRUGS (1)
  1. AMBISOME [Suspect]
     Indication: SYSTEMIC MYCOSIS
     Dosage: UNK
     Route: 065

REACTIONS (1)
  - DEATH [None]
